FAERS Safety Report 7726810-0 (Version None)
Quarter: 2011Q3

REPORT INFORMATION
  Report Type: 
  Country: None (occurrence: None)
  Receive Date: 20110902
  Receipt Date: 20110823
  Transmission Date: 20111222
  Serious: No
  Sender: FDA-Public Use
  Company Number: JP-GLAXOSMITHKLINE-B0738238A

PATIENT
  Sex: Male
  Weight: 61 kg

DRUGS (5)
  1. MUCODYNE [Concomitant]
     Indication: EMPHYSEMA
     Dosage: 500MG PER DAY
     Route: 048
  2. FLUTICASONE PROPIONATE/SALMETEROL [Suspect]
     Indication: EMPHYSEMA
     Dosage: 500MCG PER DAY
     Route: 055
     Dates: start: 20100427
  3. AMLODIPINE [Concomitant]
     Dosage: 5MG PER DAY
     Route: 048
  4. THEO-DUR [Concomitant]
     Indication: EMPHYSEMA
     Dosage: 100MG PER DAY
     Route: 048
  5. SPIRIVA [Concomitant]
     Indication: EMPHYSEMA
     Dosage: .25MCG PER DAY
     Route: 055

REACTIONS (1)
  - ASTEATOSIS [None]
